FAERS Safety Report 5777948-9 (Version None)
Quarter: 2008Q2

REPORT INFORMATION
  Report Type: 
  Country: None (occurrence: None)
  Receive Date: 20080618
  Receipt Date: 20080618
  Transmission Date: 20081010
  Serious: Yes (Death)
  Sender: FDA-Public Use
  Company Number: None

PATIENT
  Sex: Female
  Weight: 72.12 kg

DRUGS (1)
  1. NEOSTIGMINE 2MG [Suspect]
     Indication: INTESTINAL FUNCTIONAL DISORDER
     Dosage: 2MG IN D5W 50ML X1 IV
     Route: 042
     Dates: start: 20080526

REACTIONS (7)
  - BLOOD PRESSURE IMMEASURABLE [None]
  - BLOOD PRESSURE SYSTOLIC INCREASED [None]
  - PALLOR [None]
  - PULSE ABSENT [None]
  - RESPIRATORY ARREST [None]
  - RESPIRATORY RATE DECREASED [None]
  - TONGUE DISCOLOURATION [None]
